FAERS Safety Report 5082512-3 (Version None)
Quarter: 2006Q3

REPORT INFORMATION
  Report Type: 
  Country: None (occurrence: None)
  Receive Date: 20060814
  Receipt Date: 20060731
  Transmission Date: 20061208
  Serious: Yes (Other)
  Sender: FDA-Public Use
  Company Number: 2006094516

PATIENT
  Sex: Female
  Weight: 53.5244 kg

DRUGS (8)
  1. NEURONTIN [Suspect]
     Indication: DRUG USE FOR UNKNOWN INDICATION
  2. DILANTIN [Suspect]
     Indication: CONVULSION
     Dosage: 1000 MG (1 D)
  3. LYRICA [Suspect]
     Indication: DRUG USE FOR UNKNOWN INDICATION
  4. FOSAMAX [Concomitant]
  5. METHADONE HCL [Concomitant]
  6. VICODIN [Concomitant]
  7. CYMBALTA [Concomitant]
  8. PREMARIN [Concomitant]

REACTIONS (6)
  - ANTICONVULSANT DRUG LEVEL BELOW THERAPEUTIC [None]
  - CONVULSION [None]
  - INSOMNIA [None]
  - OEDEMA PERIPHERAL [None]
  - PRURITUS [None]
  - SOMNOLENCE [None]
